FAERS Safety Report 5188107-5 (Version None)
Quarter: 2006Q4

REPORT INFORMATION
  Report Type: 
  Country: None (occurrence: None)
  Receive Date: 20061214
  Receipt Date: 20061130
  Transmission Date: 20070319
  Serious: Yes (Death, Life-Threatening, Hospitalization)
  Sender: FDA-Public Use
  Company Number: HQWYE968201DEC06

PATIENT
  Age: 75 Year

DRUGS (6)
  1. CORDARONE [Suspect]
     Dosage: 200 MG 1X PER 1 DAY ORAL
     Route: 048
  2. PERINDOPRIL ERBUMINE [Suspect]
     Dosage: 2 MG 1X PER 1 DAY ORAL
     Route: 048
  3. ASPIRIN [Suspect]
     Dosage: 75 MG 1X PER 1 DAY ORAL
     Route: 048
  4. LASIX [Suspect]
     Dosage: 40 MG 1X PER 1 DAY ORAL
     Route: 048
  5. OMEPRAZOLE [Suspect]
     Dosage: 10 MG 1X PER 1 DAY ORAL
     Route: 048
  6. NERISONE [Concomitant]

REACTIONS (29)
  - ASPARTATE AMINOTRANSFERASE INCREASED [None]
  - BASE EXCESS DECREASED [None]
  - BLOOD AMYLASE INCREASED [None]
  - BLOOD CREATINE PHOSPHOKINASE INCREASED [None]
  - BLOOD GLUCOSE DECREASED [None]
  - BLOOD LACTIC ACID INCREASED [None]
  - BLOOD PH DECREASED [None]
  - BLOOD POTASSIUM DECREASED [None]
  - BLOOD UREA INCREASED [None]
  - BRADYCARDIA [None]
  - C-REACTIVE PROTEIN INCREASED [None]
  - DEHYDRATION [None]
  - FLUID INTAKE REDUCED [None]
  - HAEMOGLOBIN DECREASED [None]
  - HEART RATE IRREGULAR [None]
  - HYPOVENTILATION [None]
  - LIVEDO RETICULARIS [None]
  - LOSS OF CONSCIOUSNESS [None]
  - PCO2 INCREASED [None]
  - PLATELET COUNT DECREASED [None]
  - PO2 DECREASED [None]
  - PROTEIN TOTAL DECREASED [None]
  - PROTEIN URINE PRESENT [None]
  - PULSE ABSENT [None]
  - RALES [None]
  - RESPIRATORY ARREST [None]
  - SHOCK [None]
  - SKIN DISORDER [None]
  - TREMOR [None]
